FAERS Safety Report 7611110-X (Version None)
Quarter: 2011Q3

REPORT INFORMATION
  Report Type: 
  Country: None (occurrence: None)
  Receive Date: 20110707
  Receipt Date: 20110628
  Transmission Date: 20111222
  Serious: Yes (Other)
  Sender: FDA-Public Use
  Company Number: 2011SP029152

PATIENT
  Age: 55 Year
  Sex: Male

DRUGS (4)
  1. TEMODAL [Suspect]
     Indication: MALIGNANT GLIOMA
     Dosage: 220 MG;QD;PO
     Route: 048
     Dates: start: 20110101
  2. FAMOTIDINE [Concomitant]
  3. ZONISAMIDE [Concomitant]
  4. BETAMETHASONE [Concomitant]

REACTIONS (1)
  - HALLUCINATION [None]
